FAERS Safety Report 7969262-8 (Version None)
Quarter: 2011Q4

REPORT INFORMATION
  Report Type: 
  Country: None (occurrence: None)
  Receive Date: 20111209
  Receipt Date: 20111130
  Transmission Date: 20120403
  Serious: Yes (Other)
  Sender: FDA-Public Use
  Company Number: CN-ASTRAZENECA-2011SE72733

PATIENT

DRUGS (1)
  1. GEFITINIB [Suspect]
     Indication: LUNG ADENOCARCINOMA
     Route: 048

REACTIONS (1)
  - HEPATIC FUNCTION ABNORMAL [None]
